FAERS Safety Report 8358542-2 (Version None)
Quarter: 2012Q2

REPORT INFORMATION
  Report Type: 
  Country: None (occurrence: None)
  Receive Date: 20120514
  Receipt Date: 20120508
  Transmission Date: 20120825
  Serious: No
  Sender: FDA-Public Use
  Company Number: US-PFIZER INC-2012114404

PATIENT
  Sex: Female
  Weight: 73.5 kg

DRUGS (7)
  1. PROTONIX [Suspect]
     Indication: ULCER
     Dosage: UNK, DAILY
     Dates: start: 20120505
  2. ACETYLSALICYLIC ACID [Concomitant]
     Indication: MYOCARDIAL INFARCTION
     Dosage: 325 MG, DAILY
     Route: 048
  3. GLUCOTROL [Concomitant]
     Indication: DIABETES MELLITUS
     Dosage: UNK
     Route: 048
  4. METFORMIN [Concomitant]
     Indication: DIABETES MELLITUS
     Dosage: UNK
  5. PLAVIX [Concomitant]
     Indication: MYOCARDIAL INFARCTION
     Dosage: 75 MG, DAILY
  6. VERAPAMIL [Concomitant]
     Indication: HYPERTENSION
     Dosage: UNK,DAILY
  7. NIASPAN [Concomitant]
     Indication: HIGH DENSITY LIPOPROTEIN INCREASED
     Dosage: 1000 MG, DAILY

REACTIONS (1)
  - BLOOD GLUCOSE DECREASED [None]
